FAERS Safety Report 12393925 (Version 3)
Quarter: 2016Q4

REPORT INFORMATION
  Report Type: Other
  Country: PT (occurrence: PT)
  Receive Date: 20160523
  Receipt Date: 20161012
  Transmission Date: 20170207
  Serious: Yes (Disabling)
  Sender: FDA-Public Use
  Company Number: PT-DEPOMED, INC.-PT-2016DEP009743

PATIENT
  Age: 57 Year
  Sex: Female

DRUGS (9)
  1. PAROXETINE. [Concomitant]
     Active Substance: PAROXETINE
     Indication: DEPRESSION
     Dosage: 10 MG/DAY
     Route: 048
  2. DIAZEPAM RATIOPHARM [Concomitant]
     Active Substance: DIAZEPAM
     Indication: DEPRESSION
     Dosage: 20 MG/DAY
     Route: 048
  3. PREGABALINA [Concomitant]
     Active Substance: PREGABALIN
     Indication: BACK PAIN
     Dosage: 150 MG/DAY
     Route: 048
  4. OMEPRAZOL                          /00661201/ [Concomitant]
     Active Substance: OMEPRAZOLE
     Indication: PROPHYLAXIS AGAINST GASTROINTESTINAL ULCER
     Dosage: 20 MG/DAY
     Route: 048
  5. TAPENTADOL HYDROCHLORIDE [Suspect]
     Active Substance: TAPENTADOL HYDROCHLORIDE
     Indication: BACK PAIN
     Dosage: 50 MG, BID
     Route: 048
     Dates: start: 20160427, end: 20160428
  6. TOPIRAMATO [Concomitant]
     Active Substance: TOPIRAMATE
     Indication: MIGRAINE
     Dosage: UNK
     Route: 048
  7. AMISSULPRIDA GENERIS [Concomitant]
     Indication: DEPRESSION
     Dosage: 50 MG/DAY
     Route: 048
  8. VENLAFAXINE [Concomitant]
     Active Substance: VENLAFAXINE HYDROCHLORIDE
     Indication: DEPRESSION
     Dosage: 75 MG/DAY
     Route: 048
  9. KAINEVER [Concomitant]
     Indication: DEPRESSION
     Dosage: 4MG/DAY
     Route: 048

REACTIONS (9)
  - Vision blurred [Recovered/Resolved]
  - Eyelid oedema [Recovered/Resolved]
  - Dysarthria [Recovered/Resolved]
  - Asthenopia [Recovered/Resolved]
  - Somnolence [Recovered/Resolved]
  - Headache [Recovered/Resolved]
  - Mental impairment [Recovered/Resolved]
  - Tremor [Recovered/Resolved]
  - Dizziness [Recovered/Resolved]

NARRATIVE: CASE EVENT DATE: 20160427
